FAERS Safety Report 6691357 (Version 2)
Quarter: 2013Q2

REPORT INFORMATION
  Report Type: Spontaneous
  Country: US (occurrence: None)
  Receive Date: 20080311
  Receipt Date: 20120504
  Transmission Date: 20140414
  Serious: Yes (Other)
  Sender: FDA-Public Use
  Company Number: PHEH2007US14398

PATIENT
  Age: 50 Year
  Sex: Female

DRUGS (4)
  1. TRILEPTAL [Suspect]
     Indication: PAIN
     Dosage: 4X 150 MG, QHS, ORAL; 600 MG, QHS; 4X150 MG QHS, ORAL
     Route: 048
     Dates: start: 20060221
  2. FIORINAL [Concomitant]
  3. DIAZEPAM (DIAZEPAM) [Concomitant]
  4. MARINOL [Concomitant]

REACTIONS (2)
  - Swollen tongue [None]
  - LIP SWELLING [None]
